FAERS Safety Report 7472916 (Version 4)
Quarter: 2014Q4

REPORT INFORMATION
  Report Type: Spontaneous
  Country: US (occurrence: US)
  Receive Date: 20100714
  Receipt Date: 20141203
  Transmission Date: 20150529
  Serious: Yes (Life-Threatening, Hospitalization)
  Sender: FDA-Public Use
  Company Number: US-BAYER-201027720NA

PATIENT
  Age: 17 Year
  Sex: Female

DRUGS (11)
  1. PROZAC [Concomitant]
     Active Substance: FLUOXETINE HYDROCHLORIDE
     Dosage: 20 MG, UNK
     Route: 048
  2. LO LOESTRIN FE [Concomitant]
     Active Substance: ETHINYL ESTRADIOL\NORETHINDRONE ACETATE
     Dosage: UNK UNK, QD
     Dates: start: 20070212
  3. TRILEPTAL [Concomitant]
     Active Substance: OXCARBAZEPINE
     Dosage: 300 MG, UNK
     Route: 048
  4. YAZ [Suspect]
     Active Substance: DROSPIRENONE\ETHINYL ESTRADIOL
     Indication: POLYCYSTIC OVARIES
  5. MIRALAX [Concomitant]
     Active Substance: POLYETHYLENE GLYCOL 3350
     Dosage: UNK
     Dates: start: 200708
  6. TRILEPTAL [Concomitant]
     Active Substance: OXCARBAZEPINE
     Dosage: 150 MG, BID, FOR 60 DAYS
     Route: 048
  7. ANAPROX DS [Concomitant]
     Active Substance: NAPROXEN SODIUM
     Dosage: 550 MG, BID, AS NEEDED
     Route: 048
     Dates: start: 20070625, end: 20070815
  8. YAZ [Suspect]
     Active Substance: DROSPIRENONE\ETHINYL ESTRADIOL
     Indication: CONTRACEPTION
     Route: 048
     Dates: start: 2007, end: 2008
  9. TORADOL [Concomitant]
     Active Substance: KETOROLAC TROMETHAMINE
     Dosage: 10 MG, UNK
     Route: 048
     Dates: start: 20070815
  10. NAPROXEN. [Concomitant]
     Active Substance: NAPROXEN
     Dosage: 550 MG, UNK
     Route: 048
  11. NORETHINDRONE. [Concomitant]
     Active Substance: NORETHINDRONE
     Dosage: UNK UNK, QD

REACTIONS (4)
  - Renal tubular necrosis [None]
  - Renal failure [Unknown]
  - Internal injury [None]
  - Dehydration [None]

NARRATIVE: CASE EVENT DATE: 200708
